FAERS Safety Report 25092859 (Version 1)
Quarter: 2025Q1

REPORT INFORMATION
  Report Type: Report from Study
  Country: CA (occurrence: CA)
  Receive Date: 20250319
  Receipt Date: 20250319
  Transmission Date: 20250408
  Serious: Yes (Hospitalization, Other)
  Sender: JOHNSON AND JOHNSON
  Company Number: CA-JNJFOC-20240632713

PATIENT
  Sex: Female

DRUGS (2)
  1. REMICADE [Suspect]
     Active Substance: INFLIXIMAB
     Indication: Crohn^s disease
     Dosage: THERAPY START DATE MENTIONED AS 07/SEP/2019?EXPIRY DATE: DE-2026 X4
     Route: 041
     Dates: start: 20140610
  2. REMICADE [Suspect]
     Active Substance: INFLIXIMAB
     Indication: Psoriasis

REACTIONS (11)
  - Crohn^s disease [Not Recovered/Not Resolved]
  - Pneumonia [Not Recovered/Not Resolved]
  - Irritable bowel syndrome [Not Recovered/Not Resolved]
  - Arthralgia [Not Recovered/Not Resolved]
  - Head discomfort [Recovered/Resolved]
  - Muscle tightness [Recovered/Resolved]
  - Product dose omission issue [Unknown]
  - Nasal congestion [Unknown]
  - Feeling of body temperature change [Unknown]
  - Cough [Unknown]
  - Influenza [Unknown]
